FAERS Safety Report 8091631-9 (Version None)
Quarter: 2012Q1

REPORT INFORMATION
  Report Type: 
  Country: None (occurrence: None)
  Receive Date: 20120130
  Receipt Date: 20120130
  Transmission Date: 20120608
  Serious: Yes (Life-Threatening)
  Sender: FDA-Public Use
  Company Number: None

PATIENT
  Sex: Male
  Weight: 97.5234 kg

DRUGS (1)
  1. MORPHINE [Suspect]
     Indication: THROMBOSIS
     Dosage: 100MG 2X A DAY ORAL
     Route: 048

REACTIONS (10)
  - ABDOMINAL PAIN UPPER [None]
  - SWELLING [None]
  - DIARRHOEA [None]
  - SWELLING FACE [None]
  - UNEVALUABLE EVENT [None]
  - VOMITING [None]
  - SWOLLEN TONGUE [None]
  - SINUS DISORDER [None]
  - LOCAL SWELLING [None]
  - GINGIVAL SWELLING [None]
